FAERS Safety Report 17488858 (Version 1)
Quarter: 2020Q1

REPORT INFORMATION
  Report Type: Spontaneous
  Country: US (occurrence: US)
  Receive Date: 20200303
  Receipt Date: 20200303
  Transmission Date: 20200409
  Serious: Yes (Other)
  Sender: FDA-Public Use
  Company Number: None

PATIENT
  Age: 61 Year
  Sex: Female
  Weight: 48.51 kg

DRUGS (12)
  1. DEXAMETHASONE 2 MG [Concomitant]
  2. HYDROCODONE BITARTRATE ER 10 MG [Concomitant]
  3. LORAZEPAM 2 MG [Concomitant]
     Active Substance: LORAZEPAM
  4. GLEOSTINE [Suspect]
     Active Substance: LOMUSTINE
     Indication: BRAIN NEOPLASM MALIGNANT
     Dosage: ?          OTHER FREQUENCY:EVERY 6 WEEKS;?
     Route: 048
     Dates: start: 20200117
  5. GLEOSTINE [Suspect]
     Active Substance: LOMUSTINE
     Indication: BRAIN NEOPLASM MALIGNANT
     Dosage: ?          OTHER FREQUENCY:EVERY 6 WEEKS;?
     Route: 048
     Dates: start: 20200117
  6. FAMOTIDINE 20 MG [Concomitant]
     Active Substance: FAMOTIDINE
  7. FUROSEMIDE 20 MG [Concomitant]
     Active Substance: FUROSEMIDE
  8. SPIRONOLACTONE 25 MG [Concomitant]
     Active Substance: SPIRONOLACTONE
  9. OXYCODONE 10 MG [Concomitant]
  10. TRAZODONE [Concomitant]
     Active Substance: TRAZODONE HYDROCHLORIDE
  11. VALACYCLOVIR 1 GM [Concomitant]
     Active Substance: VALACYCLOVIR HYDROCHLORIDE
  12. ONDANSETRON. [Concomitant]
     Active Substance: ONDANSETRON

REACTIONS (1)
  - Disease progression [None]
